FAERS Safety Report 9652303 (Version 1)
Quarter: 2013Q4

REPORT INFORMATION
  Report Type: Spontaneous
  Country: US (occurrence: US)
  Receive Date: 20131029
  Receipt Date: 20131029
  Transmission Date: 20140711
  Serious: No
  Sender: FDA-Public Use
  Company Number: US-BIOGENIDEC-2013BI075495

PATIENT
  Age: 36 Year
  Sex: Female

DRUGS (7)
  1. TECFIDERA [Suspect]
     Indication: MULTIPLE SCLEROSIS
     Route: 048
     Dates: start: 201307, end: 20130726
  2. TECFIDERA [Suspect]
     Indication: MULTIPLE SCLEROSIS
     Route: 048
  3. BACLOFEN [Concomitant]
  4. VIT C [Concomitant]
  5. LEVOTHROXON [Concomitant]
  6. OMEGA 3 [Concomitant]
  7. VIT D [Concomitant]

REACTIONS (2)
  - Diarrhoea [Unknown]
  - Abdominal pain [Unknown]
